FAERS Safety Report 24540477 (Version 1)
Quarter: 2024Q4

REPORT INFORMATION
  Report Type: Spontaneous
  Country: US (occurrence: US)
  Receive Date: 20241023
  Receipt Date: 20241023
  Transmission Date: 20250115
  Serious: No
  Sender: CSL Plasma
  Company Number: US-CSLP-26602786342-V14019004-2

PATIENT
  Age: 24 Year
  Sex: Female

DRUGS (1)
  1. ANTICOAGULANT SODIUM CITRATE [Suspect]
     Active Substance: SODIUM CITRATE
     Indication: Anticoagulant therapy
     Route: 050
     Dates: start: 20240927, end: 20240927

REACTIONS (13)
  - Vessel puncture site bruise [Recovered/Resolved]
  - Induration [Recovered/Resolved]
  - Skin discolouration [Recovered/Resolved]
  - Movement disorder [Recovered/Resolved]
  - Pain [Recovered/Resolved]
  - Flushing [Recovered/Resolved]
  - Muscle spasms [Recovered/Resolved]
  - Feeling hot [Recovered/Resolved]
  - Hypoaesthesia [Recovered/Resolved]
  - Paraesthesia [Recovered/Resolved]
  - Muscle tightness [Recovered/Resolved]
  - Nausea [Recovered/Resolved]
  - Vessel puncture site haematoma [Recovered/Resolved]

NARRATIVE: CASE EVENT DATE: 20240927
